FAERS Safety Report 6534967-2 (Version None)
Quarter: 2010Q1

REPORT INFORMATION
  Report Type: 
  Country: None (occurrence: None)
  Receive Date: 20100111
  Receipt Date: 20100111
  Transmission Date: 20100710
  Serious: No
  Sender: FDA-Public Use
  Company Number: None

PATIENT
  Age: 26 Year
  Sex: Male
  Weight: 110.7 kg

DRUGS (2)
  1. DIVALPROEX SODIUM [Suspect]
     Indication: ABDOMINAL PAIN
     Dosage: 1500 MG AT BEDTIME PO
     Route: 048
     Dates: start: 20091228
  2. DIVALPROEX SODIUM [Suspect]
     Indication: DIARRHOEA
     Dosage: 1500 MG AT BEDTIME PO
     Route: 048
     Dates: start: 20091228

REACTIONS (5)
  - ABDOMINAL PAIN [None]
  - DIARRHOEA [None]
  - GASTROENTERITIS [None]
  - MUSCLE TWITCHING [None]
  - PRODUCT SUBSTITUTION ISSUE [None]
